FAERS Safety Report 4796360-2 (Version None)
Quarter: 2005Q4

REPORT INFORMATION
  Report Type: 
  Country: None (occurrence: None)
  Receive Date: 20051007
  Receipt Date: 20051004
  Transmission Date: 20060501
  Serious: Yes (Hospitalization)
  Sender: FDA-Public Use
  Company Number: 210130

PATIENT
  Age: 53 Year
  Sex: Male

DRUGS (5)
  1. RITUXAN [Suspect]
     Indication: LYMPHOMA
     Dates: end: 20040317
  2. CYCLOPHOSPHAMIDE [Suspect]
     Dates: end: 20040317
  3. DOXORUBICIN HCL [Suspect]
     Dates: end: 20040317
  4. VINCRISTINE [Suspect]
     Dates: end: 20040317
  5. PREDNISONE [Suspect]
     Dates: end: 20040321

REACTIONS (7)
  - BLOOD GLUCOSE INCREASED [None]
  - BLOOD URIC ACID INCREASED [None]
  - DEPRESSED LEVEL OF CONSCIOUSNESS [None]
  - LIVER DISORDER [None]
  - NAUSEA [None]
  - RHABDOMYOLYSIS [None]
  - VOMITING [None]
